FAERS Safety Report 13072253 (Version 1)
Quarter: 2016Q4

REPORT INFORMATION
  Report Type: Report from Study
  Country: US (occurrence: US)
  Receive Date: 20161229
  Receipt Date: 20161229
  Transmission Date: 20170207
  Serious: Yes (Hospitalization)
  Sender: FDA-Public Use
  Company Number: US-ACTELION-A-US2016-147372

PATIENT
  Age: 62 Year
  Sex: Female

DRUGS (17)
  1. ZOLOFT [Concomitant]
     Active Substance: SERTRALINE HYDROCHLORIDE
  2. FOLIC ACID. [Concomitant]
     Active Substance: FOLIC ACID
  3. ALDACTONE [Concomitant]
     Active Substance: SPIRONOLACTONE
  4. GABAPENTIN. [Concomitant]
     Active Substance: GABAPENTIN
  5. REVATIO [Concomitant]
     Active Substance: SILDENAFIL CITRATE
  6. REMODULIN [Concomitant]
     Active Substance: TREPROSTINIL
  7. FIBERCON [Concomitant]
     Active Substance: CALCIUM POLYCARBOPHIL
  8. DICYCLOMINE [Concomitant]
     Active Substance: DICYCLOMINE HYDROCHLORIDE
  9. FAMOTIDINE. [Concomitant]
     Active Substance: FAMOTIDINE
  10. METOPROLOL. [Concomitant]
     Active Substance: METOPROLOL
  11. ARIAL [Concomitant]
  12. TRACLEER [Suspect]
     Active Substance: BOSENTAN
     Indication: PULMONARY ARTERIAL HYPERTENSION
     Dosage: 125 MG, BID
     Route: 048
     Dates: start: 20090831
  13. LASIX [Concomitant]
     Active Substance: FUROSEMIDE
  14. CRESTOR [Concomitant]
     Active Substance: ROSUVASTATIN CALCIUM
  15. LORTAB [Concomitant]
     Active Substance: ACETAMINOPHEN\HYDROCODONE BITARTRATE
  16. POTASSIUM CHLORIDE. [Concomitant]
     Active Substance: POTASSIUM CHLORIDE
  17. ARAVA [Concomitant]
     Active Substance: LEFLUNOMIDE

REACTIONS (2)
  - Pancreatitis [Unknown]
  - Colitis ulcerative [Unknown]
